FAERS Safety Report 20299086 (Version 1)
Quarter: 2022Q1

REPORT INFORMATION
  Report Type: Spontaneous
  Country: DE (occurrence: None)
  Receive Date: 20220105
  Receipt Date: 20220105
  Transmission Date: 20220423
  Serious: Yes (Other)
  Sender: FDA-Public Use
  Company Number: 2021A904392

PATIENT
  Sex: Female

DRUGS (4)
  1. FASENRA [Suspect]
     Active Substance: BENRALIZUMAB
     Indication: Product used for unknown indication
     Dosage: UNK UNK, QMO
     Route: 065
  2. FASENRA [Suspect]
     Active Substance: BENRALIZUMAB
     Indication: Product used for unknown indication
     Dosage: 2 DOSAGE FORM, QMO
     Route: 058
     Dates: start: 201806, end: 2018
  3. XOLAIR [Suspect]
     Active Substance: OMALIZUMAB
     Indication: Food allergy
     Dosage: UNK UNK, QMO
     Route: 065
     Dates: start: 201806, end: 2018
  4. XOLAIR [Suspect]
     Active Substance: OMALIZUMAB
     Indication: Urticaria
     Dosage: UNK UNK, QMO
     Route: 065
     Dates: start: 201806, end: 2018

REACTIONS (3)
  - Hypereosinophilic syndrome [Unknown]
  - Eosinophil count increased [Unknown]
  - Eczema [Unknown]

NARRATIVE: CASE EVENT DATE: 20180801
